FAERS Safety Report 15014521 (Version 1)
Quarter: 2018Q2

REPORT INFORMATION
  Report Type: Spontaneous
  Country: FR (occurrence: FR)
  Receive Date: 20180615
  Receipt Date: 20180615
  Transmission Date: 20180711
  Serious: Yes (Hospitalization)
  Sender: FDA-Public Use
  Company Number: FR-TEVA-2018-FR-906844

PATIENT
  Age: 33 Year
  Sex: Male

DRUGS (2)
  1. CARBAMAZEPINE. [Suspect]
     Active Substance: CARBAMAZEPINE
     Indication: TRIGEMINAL NEURALGIA
     Dosage: 1200 MILLIGRAM DAILY;
     Route: 048
     Dates: start: 20180405, end: 20180415
  2. SOPHIDONE L.P. 4 MG, G?LULE ? LIB?RATION PROLONG?E [Suspect]
     Active Substance: HYDROMORPHONE HYDROCHLORIDE
     Indication: TRIGEMINAL NEURALGIA
     Dosage: 8 MILLIGRAM DAILY;
     Route: 048
     Dates: start: 20180405, end: 20180415

REACTIONS (3)
  - Transaminases increased [Recovering/Resolving]
  - Pyrexia [Recovered/Resolved]
  - Rash [Recovering/Resolving]

NARRATIVE: CASE EVENT DATE: 20180413
